FAERS Safety Report 6039922-7 (Version None)
Quarter: 2009Q1

REPORT INFORMATION
  Report Type: 
  Country: None (occurrence: None)
  Receive Date: 20090116
  Receipt Date: 20090108
  Transmission Date: 20090719
  Serious: No
  Sender: FDA-Public Use
  Company Number: GR-EISAI MEDIAL RESEARCH-E3810-02466-SPO-GR

PATIENT
  Age: 68 Year
  Sex: Male

DRUGS (2)
  1. RABEPRAZOLE SODIUM [Suspect]
     Indication: GASTROOESOPHAGEAL REFLUX DISEASE
     Route: 048
  2. CITRATE DEXTROSE [Concomitant]
     Indication: ANTICOAGULANT THERAPY

REACTIONS (1)
  - CHEST PAIN [None]
